FAERS Safety Report 13510004 (Version 3)
Quarter: 2019Q4

REPORT INFORMATION
  Report Type: Spontaneous
  Country: US (occurrence: US)
  Receive Date: 20170503
  Receipt Date: 20191009
  Transmission Date: 20200122
  Serious: No
  Sender: FDA-Public Use
  Company Number: US-SA-2017SA061927

PATIENT
  Age: 87 Year
  Sex: Female

DRUGS (8)
  1. DULERA [Concomitant]
     Active Substance: FORMOTEROL FUMARATE DIHYDRATE\MOMETASONE FUROATE
     Indication: ASTHMA
     Dosage: 2 DF,BID
  2. BISOPROLOL [Concomitant]
     Active Substance: BISOPROLOL
     Dosage: 2 DF,UNK
  3. PRALUENT [Suspect]
     Active Substance: ALIROCUMAB
     Indication: DYSLIPIDAEMIA
     Dosage: 150 MG, QOW
     Route: 058
     Dates: start: 20171205
  4. CILOSTAZOL. [Concomitant]
     Active Substance: CILOSTAZOL
     Indication: ANTICOAGULANT THERAPY
     Dosage: UNK UNK,BID
     Dates: start: 20150401
  5. PREMARIN [Concomitant]
     Active Substance: ESTROGENS, CONJUGATED
     Dosage: UNK UNK,TIW
  6. REPATHA [Concomitant]
     Active Substance: EVOLOCUMAB
     Dosage: UNK UNK,UNK
     Dates: start: 2016
  7. METFORMIN [Concomitant]
     Active Substance: METFORMIN HYDROCHLORIDE
     Indication: DIABETES MELLITUS
     Dosage: UNK UNK,UNK
  8. PRALUENT [Suspect]
     Active Substance: ALIROCUMAB
     Indication: HYPERLIPIDAEMIA
     Dosage: 150 MG,QOW
     Route: 058
     Dates: start: 20170113

REACTIONS (7)
  - Cough [Not Recovered/Not Resolved]
  - Back pain [Unknown]
  - Injection site erythema [Not Recovered/Not Resolved]
  - Injection site bruising [Not Recovered/Not Resolved]
  - Injection site swelling [Not Recovered/Not Resolved]
  - Injection site pain [Not Recovered/Not Resolved]
  - Injection site reaction [Not Recovered/Not Resolved]

NARRATIVE: CASE EVENT DATE: 20170315
